FAERS Safety Report 7347870-5 (Version None)
Quarter: 2011Q1

REPORT INFORMATION
  Report Type: 
  Country: None (occurrence: None)
  Receive Date: 20110311
  Receipt Date: 20110302
  Transmission Date: 20110831
  Serious: Yes (Other)
  Sender: FDA-Public Use
  Company Number: US-JNJFOC-20110301760

PATIENT
  Sex: Male
  Weight: 86.18 kg

DRUGS (1)
  1. REMICADE [Suspect]
     Indication: CROHN'S DISEASE
     Route: 042

REACTIONS (5)
  - DARK CIRCLES UNDER EYES [None]
  - MALAISE [None]
  - ABNORMAL LOSS OF WEIGHT [None]
  - DIARRHOEA [None]
  - EYES SUNKEN [None]
